FAERS Safety Report 12480561 (Version 1)
Quarter: 2016Q2

REPORT INFORMATION
  Report Type: Spontaneous
  Country: GB (occurrence: GB)
  Receive Date: 20160620
  Receipt Date: 20160620
  Transmission Date: 20160815
  Serious: Yes (Other)
  Sender: FDA-Public Use
  Company Number: GB-GLAXOSMITHKLINE-B0360565A

PATIENT
  Age: 47 Year
  Sex: Female

DRUGS (3)
  1. PAROXETINE HYDROCHLORIDE. [Suspect]
     Active Substance: PAROXETINE HYDROCHLORIDE
     Indication: DEPRESSION
     Dosage: UNK
     Route: 065
     Dates: start: 19941110, end: 19980417
  2. SEROXAT [Suspect]
     Active Substance: PAROXETINE HYDROCHLORIDE
     Indication: DEPRESSION
     Dosage: UNK
     Route: 048
     Dates: start: 20071002
  3. PYRIDOXINE HYDROCHLORIDE. [Concomitant]
     Active Substance: PYRIDOXINE HYDROCHLORIDE
     Indication: PRODUCT USED FOR UNKNOWN INDICATION
     Dosage: UNK
     Dates: start: 19980827

REACTIONS (19)
  - Suicidal ideation [Unknown]
  - Asthenia [Unknown]
  - Anxiety [Unknown]
  - Weight fluctuation [Unknown]
  - Anger [Unknown]
  - Memory impairment [Unknown]
  - Nausea [Unknown]
  - Myalgia [Unknown]
  - Neck pain [Unknown]
  - Paraesthesia [Unknown]
  - Diarrhoea [Unknown]
  - Back pain [Unknown]
  - Depersonalisation/derealisation disorder [Unknown]
  - Aggression [Unknown]
  - Apathy [Unknown]
  - Sleep disorder [Unknown]
  - Withdrawal syndrome [Unknown]
  - Dissociation [Unknown]
  - Disturbance in attention [Unknown]

NARRATIVE: CASE EVENT DATE: 20020521
